FAERS Safety Report 16075466 (Version 1)
Quarter: 2019Q1

REPORT INFORMATION
  Report Type: Report from Study
  Country: None (occurrence: CA)
  Receive Date: 20190315
  Receipt Date: 20190315
  Transmission Date: 20190418
  Serious: Yes (Hospitalization, Other)
  Sender: FDA-Public Use
  Company Number: CA-ABBVIE-19S-028-2685524-00

PATIENT
  Sex: Male

DRUGS (4)
  1. PRO-BICALUTAMIDE [Concomitant]
     Indication: PRODUCT USED FOR UNKNOWN INDICATION
  2. LUPRON DEPOT [Suspect]
     Active Substance: LEUPROLIDE ACETATE
     Indication: PROSTATE CANCER
     Route: 030
     Dates: start: 20141028
  3. CARBOCAL D BLUE FONCE [Concomitant]
     Indication: PRODUCT USED FOR UNKNOWN INDICATION
     Dosage: 500MG 400UI
  4. PRAVASTATIN. [Concomitant]
     Active Substance: PRAVASTATIN
     Indication: PRODUCT USED FOR UNKNOWN INDICATION

REACTIONS (7)
  - Sputum retention [Unknown]
  - Unevaluable event [Unknown]
  - Pneumonia [Unknown]
  - Influenza [Unknown]
  - Prostate cancer [Unknown]
  - Acute pulmonary oedema [Unknown]
  - Blood pressure decreased [Unknown]
